FAERS Safety Report 7707850-4 (Version None)
Quarter: 2011Q3

REPORT INFORMATION
  Report Type: 
  Country: None (occurrence: None)
  Receive Date: 20110824
  Receipt Date: 20110817
  Transmission Date: 20111222
  Serious: Yes (Hospitalization)
  Sender: FDA-Public Use
  Company Number: PHHY2011PL73954

PATIENT
  Sex: Female
  Weight: 75 kg

DRUGS (4)
  1. VITAMIN B6 [Concomitant]
  2. MYOLASTAN [Concomitant]
  3. KETOPROFEN [Suspect]
     Indication: MUSCULOSKELETAL PAIN
     Dosage: 100 MG, UNK
     Route: 030
     Dates: start: 20110628, end: 20110628
  4. VITAMIN B1 TAB [Concomitant]

REACTIONS (2)
  - BLOOD PRESSURE DECREASED [None]
  - LOSS OF CONSCIOUSNESS [None]
